FAERS Safety Report 16091612 (Version 1)
Quarter: 2019Q1

REPORT INFORMATION
  Report Type: Spontaneous
  Country: ES (occurrence: ES)
  Receive Date: 20190319
  Receipt Date: 20190319
  Transmission Date: 20190418
  Serious: Yes (Death, Other)
  Sender: FDA-Public Use
  Company Number: ES-BAYER-2019-022460

PATIENT
  Age: 66 Year

DRUGS (1)
  1. STIVARGA [Suspect]
     Active Substance: REGORAFENIB
     Indication: METASTASES TO LUNG
     Dosage: UNK
     Dates: start: 201302

REACTIONS (3)
  - Metastases to lung [None]
  - Death [Fatal]
  - Asthenia [None]

NARRATIVE: CASE EVENT DATE: 201602
